FAERS Safety Report 13130999 (Version 1)
Quarter: 2017Q1

REPORT INFORMATION
  Report Type: Report from Study
  Country: HU (occurrence: HU)
  Receive Date: 20170119
  Receipt Date: 20170119
  Transmission Date: 20170428
  Serious: Yes (Other)
  Sender: FDA-Public Use
  Company Number: HU-ROCHE-1853323

PATIENT
  Age: 75 Year
  Sex: Male
  Weight: 84 kg

DRUGS (4)
  1. COTELLIC [Suspect]
     Active Substance: COBIMETINIB
     Indication: METASTATIC MALIGNANT MELANOMA
     Route: 048
     Dates: start: 201610, end: 201612
  2. ZELBORAF [Suspect]
     Active Substance: VEMURAFENIB
     Route: 048
     Dates: start: 20161010, end: 20161104
  3. ZELBORAF [Suspect]
     Active Substance: VEMURAFENIB
     Route: 048
     Dates: start: 201611, end: 201612
  4. ZELBORAF [Suspect]
     Active Substance: VEMURAFENIB
     Indication: METASTATIC MALIGNANT MELANOMA
     Route: 048
     Dates: start: 20160929, end: 2016

REACTIONS (6)
  - Photosensitivity reaction [Recovered/Resolved]
  - Palmar-plantar erythrodysaesthesia syndrome [Recovering/Resolving]
  - Pneumonia [Recovered/Resolved]
  - Pneumonitis [Recovered/Resolved]
  - Hepatic enzyme abnormal [Recovered/Resolved]
  - Glomerular filtration rate decreased [Recovered/Resolved]

NARRATIVE: CASE EVENT DATE: 20161003
